FAERS Safety Report 9321421 (Version 4)
Quarter: 2013Q3

REPORT INFORMATION
  Report Type: Spontaneous
  Country: JP (occurrence: JP)
  Receive Date: 20130531
  Receipt Date: 20130708
  Transmission Date: 20140515
  Serious: Yes (Hospitalization)
  Sender: FDA-Public Use
  Company Number: JP-UCBSA-087478

PATIENT
  Age: 75 Year
  Sex: Female

DRUGS (2)
  1. E KEPPRA [Suspect]
     Indication: EPILEPSY
     Route: 048
     Dates: start: 20130311, end: 20130518
  2. WARFARIN [Concomitant]
     Route: 048

REACTIONS (1)
  - Oedema peripheral [Recovered/Resolved]
